FAERS Safety Report 7789154-7 (Version None)
Quarter: 2011Q3

REPORT INFORMATION
  Report Type: 
  Country: None (occurrence: None)
  Receive Date: 20110930
  Receipt Date: 20110927
  Transmission Date: 20111222
  Serious: Yes (Death, Other)
  Sender: FDA-Public Use
  Company Number: AU-SANOFI-AVENTIS-2011SA063159

PATIENT
  Age: 68 Year
  Sex: Female

DRUGS (2)
  1. ACTONEL [Concomitant]
     Route: 065
     Dates: start: 20050702
  2. TAXOTERE [Suspect]
     Indication: BREAST CANCER
     Route: 065

REACTIONS (2)
  - DEATH [None]
  - LEUKAEMIA [None]
